FAERS Safety Report 14830779 (Version 1)
Quarter: 2018Q2

REPORT INFORMATION
  Report Type: Spontaneous
  Country: US (occurrence: US)
  Receive Date: 20180430
  Receipt Date: 20180430
  Transmission Date: 20180711
  Serious: No
  Sender: FDA-Public Use
  Company Number: US-SA-2018SA106421

PATIENT
  Age: 67 Year
  Sex: Male

DRUGS (4)
  1. VICTOZA [Suspect]
     Active Substance: LIRAGLUTIDE
     Dosage: NEEDLE: 4 MM
     Route: 065
  2. NIACIN. [Concomitant]
     Active Substance: NIACIN
     Route: 065
  3. PRALUENT [Suspect]
     Active Substance: ALIROCUMAB
     Indication: ARTERIOSCLEROSIS
     Dosage: NEEDLE: 8 MM
     Route: 058
     Dates: start: 20180316
  4. ALIROCUMAB PREFILLED PEN [Suspect]
     Active Substance: ALIROCUMAB
     Indication: ARTERIOSCLEROSIS
     Dosage: NEEDLE: 8 MM
     Dates: start: 20180316

REACTIONS (4)
  - Condition aggravated [Unknown]
  - Gastrointestinal pain [Unknown]
  - Myalgia [Unknown]
  - Abdominal discomfort [Unknown]
